FAERS Safety Report 14380332 (Version 1)
Quarter: 2018Q1

REPORT INFORMATION
  Report Type: Report from Study
  Country: None (occurrence: ES)
  Receive Date: 20180112
  Receipt Date: 20180112
  Transmission Date: 20180509
  Serious: Yes (Death)
  Sender: FDA-Public Use
  Company Number: ES-ABBVIE-18S-144-2218075-00

PATIENT
  Age: 2 Month
  Sex: Female
  Weight: 2.17 kg

DRUGS (1)
  1. SYNAGIS [Suspect]
     Active Substance: PALIVIZUMAB
     Indication: ANTIVIRAL PROPHYLAXIS
     Route: 050
     Dates: start: 20171221

REACTIONS (1)
  - Death [Fatal]

NARRATIVE: CASE EVENT DATE: 20180109
